FAERS Safety Report 11336514 (Version 3)
Quarter: 2016Q2

REPORT INFORMATION
  Report Type: Spontaneous
  Country: PT (occurrence: PT)
  Receive Date: 20150804
  Receipt Date: 20160407
  Transmission Date: 20160815
  Serious: Yes (Death, Other)
  Sender: FDA-Public Use
  Company Number: PT-GILEAD-2015-0166028

PATIENT
  Age: 47 Year
  Sex: Male
  Weight: 83 kg

DRUGS (12)
  1. AMICACINA                          /00391001/ [Concomitant]
     Dosage: UNK
     Route: 042
     Dates: start: 20150609, end: 20150713
  2. MEROPENEM. [Concomitant]
     Active Substance: MEROPENEM
     Dosage: UNK
     Route: 042
     Dates: start: 20150612, end: 20150722
  3. COLISTIMETATO DE SODIO GES [Concomitant]
     Active Substance: COLISTIMETHATE SODIUM
     Dosage: UNK
     Route: 048
     Dates: start: 20150303, end: 20150722
  4. PIPERACILLIN AND TAZOBACTAM [Concomitant]
     Active Substance: PIPERACILLIN SODIUM\TAZOBACTAM SODIUM
     Dosage: UNK
     Route: 042
     Dates: start: 20150607, end: 20150611
  5. VORICONAZOL [Concomitant]
     Active Substance: VORICONAZOLE
     Dosage: UNK
     Route: 042
     Dates: start: 20150720, end: 20150722
  6. VANCOMYCIN [Concomitant]
     Active Substance: VANCOMYCIN
     Dosage: UNK
     Route: 042
     Dates: start: 20150625, end: 20150722
  7. COLISTIMETATO DE SODIO GES [Concomitant]
     Active Substance: COLISTIMETHATE SODIUM
     Dosage: UNK
     Dates: start: 20150710, end: 20150722
  8. VORICONAZOL [Concomitant]
     Active Substance: VORICONAZOLE
     Dosage: UNK
     Route: 048
     Dates: start: 20150607, end: 20150715
  9. RITUXIMAB [Concomitant]
     Active Substance: RITUXIMAB
     Indication: CHRONIC LYMPHOCYTIC LEUKAEMIA
     Dosage: UNK
     Route: 065
     Dates: start: 20150629
  10. ZYDELIG [Suspect]
     Active Substance: IDELALISIB
     Indication: CHRONIC LYMPHOCYTIC LEUKAEMIA
     Dosage: UNK
     Route: 065
     Dates: start: 20150629
  11. LINEZOLIDE [Concomitant]
     Active Substance: LINEZOLID
     Dosage: UNK
     Route: 042
     Dates: start: 20150703, end: 20150717
  12. CEFTAZIDIMA                        /00559701/ [Concomitant]
     Dosage: UNK
     Route: 042
     Dates: start: 20150611, end: 20150612

REACTIONS (7)
  - Central nervous system lesion [Fatal]
  - Pneumonia [Not Recovered/Not Resolved]
  - Pseudomonas test positive [Unknown]
  - Thrombocytopenia [Not Recovered/Not Resolved]
  - Lymphocytosis [Not Recovered/Not Resolved]
  - Anaemia [Not Recovered/Not Resolved]
  - Septic embolus [Not Recovered/Not Resolved]

NARRATIVE: CASE EVENT DATE: 20150706
